FAERS Safety Report 9827410 (Version 2)
Quarter: 2014Q1

REPORT INFORMATION
  Report Type: Spontaneous
  Country: JP (occurrence: JP)
  Receive Date: 20140117
  Receipt Date: 20140204
  Transmission Date: 20141002
  Serious: Yes (Hospitalization)
  Sender: FDA-Public Use
  Company Number: JP-CELGENEUS-087-21880-14012563

PATIENT
  Age: 79 Year
  Sex: Female
  Weight: 62.2 kg

DRUGS (40)
  1. REVLIMID [Suspect]
     Indication: PLASMA CELL MYELOMA
     Route: 048
     Dates: start: 20120530, end: 20131028
  2. ELOTUZUMAB [Suspect]
     Indication: PLASMA CELL MYELOMA
     Route: 041
     Dates: start: 20120530, end: 20131211
  3. DEXAMETHASONE [Suspect]
     Indication: PLASMA CELL MYELOMA
     Route: 048
     Dates: start: 20120529, end: 20130619
  4. IV DEXAMETHASONE [Suspect]
     Indication: PLASMA CELL MYELOMA
     Route: 041
     Dates: start: 20120530, end: 20130807
  5. AMARYL [Concomitant]
     Indication: PRODUCT USED FOR UNKNOWN INDICATION
     Route: 065
     Dates: start: 2003, end: 20131202
  6. TAKEPRON [Concomitant]
     Indication: PRODUCT USED FOR UNKNOWN INDICATION
     Route: 048
     Dates: start: 20090708
  7. MAGMITT [Concomitant]
     Indication: PRODUCT USED FOR UNKNOWN INDICATION
     Route: 048
     Dates: start: 20090710
  8. PANTOSIN [Concomitant]
     Indication: PRODUCT USED FOR UNKNOWN INDICATION
     Route: 048
     Dates: start: 20090710
  9. VOGLIBOSE [Concomitant]
     Indication: PRODUCT USED FOR UNKNOWN INDICATION
     Route: 065
     Dates: start: 2003
  10. MYSLEE [Concomitant]
     Indication: PRODUCT USED FOR UNKNOWN INDICATION
     Route: 048
     Dates: start: 2009
  11. OXINORM [Concomitant]
     Indication: PRODUCT USED FOR UNKNOWN INDICATION
     Route: 065
     Dates: start: 20090710
  12. LYRICA [Concomitant]
     Indication: PRODUCT USED FOR UNKNOWN INDICATION
     Route: 048
     Dates: start: 20101112, end: 20130415
  13. LYRICA [Concomitant]
     Route: 048
     Dates: start: 20130416
  14. ONON [Concomitant]
     Indication: PRODUCT USED FOR UNKNOWN INDICATION
     Route: 065
     Dates: start: 20120403
  15. JANUVIA [Concomitant]
     Indication: PRODUCT USED FOR UNKNOWN INDICATION
     Route: 048
     Dates: start: 20120412
  16. BAYASPIRIN [Concomitant]
     Indication: PRODUCT USED FOR UNKNOWN INDICATION
     Route: 048
     Dates: start: 20120530
  17. DIFLUCAN [Concomitant]
     Indication: PRODUCT USED FOR UNKNOWN INDICATION
     Route: 048
     Dates: start: 20120530, end: 20131224
  18. PURSENNID [Concomitant]
     Indication: PRODUCT USED FOR UNKNOWN INDICATION
     Route: 048
     Dates: start: 20120606
  19. NOVOLIN R [Concomitant]
     Indication: PRODUCT USED FOR UNKNOWN INDICATION
     Route: 065
     Dates: start: 20120530, end: 20131203
  20. ZOMETA [Concomitant]
     Indication: PRODUCT USED FOR UNKNOWN INDICATION
     Route: 065
     Dates: start: 20120529, end: 20120529
  21. LAXOBERON [Concomitant]
     Indication: PRODUCT USED FOR UNKNOWN INDICATION
     Route: 065
     Dates: start: 20120710, end: 20130731
  22. GENINAX [Concomitant]
     Indication: ADVERSE EVENT
     Route: 048
     Dates: start: 20120821, end: 20120825
  23. SYMBICORT [Concomitant]
     Indication: ADVERSE EVENT
     Route: 055
     Dates: start: 20120821, end: 20120828
  24. SYMBICORT [Concomitant]
     Route: 055
     Dates: start: 20120829, end: 20120917
  25. ALLELOCK [Concomitant]
     Indication: PRODUCT USED FOR UNKNOWN INDICATION
     Route: 048
     Dates: start: 20121017, end: 20121224
  26. ALLELOCK [Concomitant]
     Route: 048
     Dates: start: 20131001, end: 20131202
  27. INFLUENZA VACCINE [Concomitant]
     Indication: PRODUCT USED FOR UNKNOWN INDICATION
     Route: 065
     Dates: start: 20121122, end: 20121122
  28. INFLUENZA VACCINE [Concomitant]
     Route: 065
     Dates: start: 20131031, end: 20131031
  29. CRAVIT [Concomitant]
     Indication: ADVERSE EVENT
     Route: 048
     Dates: start: 20130205, end: 20130218
  30. CRAVIT [Concomitant]
     Route: 047
     Dates: start: 20121213, end: 20130116
  31. FLUMETHOLON [Concomitant]
     Indication: ADVERSE EVENT
     Route: 047
     Dates: start: 20121213, end: 20130116
  32. PRORANON [Concomitant]
     Indication: ADVERSE EVENT
     Route: 047
     Dates: start: 20130117, end: 20130122
  33. PRORANON [Concomitant]
     Route: 047
     Dates: start: 20130123, end: 20130916
  34. LOXONIN [Concomitant]
     Indication: ADVERSE EVENT
     Route: 065
     Dates: start: 20130219, end: 20130219
  35. PL GRANULE [Concomitant]
     Indication: ADVERSE EVENT
     Route: 065
     Dates: start: 20130329, end: 20130402
  36. PL GRANULE [Concomitant]
     Route: 065
     Dates: start: 20130903, end: 20130907
  37. PL GRANULE [Concomitant]
     Route: 065
     Dates: start: 20131103, end: 20131105
  38. HUSTAZOL [Concomitant]
     Indication: ADVERSE EVENT
     Route: 048
     Dates: start: 20130329, end: 20130402
  39. GENTACIN [Concomitant]
     Indication: ADVERSE EVENT
     Route: 065
     Dates: start: 20130806, end: 20131001
  40. ARASENA-A [Concomitant]
     Indication: ADVERSE EVENT
     Route: 065
     Dates: start: 20130928, end: 20131028

REACTIONS (1)
  - Diabetes mellitus [Recovered/Resolved]
